FAERS Safety Report 12364833 (Version 1)
Quarter: 2016Q2

REPORT INFORMATION
  Report Type: Spontaneous
  Country: US (occurrence: US)
  Receive Date: 20160513
  Receipt Date: 20160513
  Transmission Date: 20160815
  Serious: Yes (Other)
  Sender: FDA-Public Use
  Company Number: US-ASTRAZENECA-2016SE48763

PATIENT
  Sex: Female

DRUGS (3)
  1. CARBOPLATINUM [Concomitant]
     Active Substance: CARBOPLATIN
  2. CEDIRANIB [Concomitant]
     Active Substance: CEDIRANIB
  3. OLAPARIB [Suspect]
     Active Substance: OLAPARIB
     Indication: PRODUCT USED FOR UNKNOWN INDICATION
     Route: 048
     Dates: start: 2015

REACTIONS (2)
  - Disease progression [Unknown]
  - Anaemia [Unknown]
